FAERS Safety Report 5108688-7 (Version None)
Quarter: 2006Q3

REPORT INFORMATION
  Report Type: 
  Country: None (occurrence: None)
  Receive Date: 20060915
  Receipt Date: 20060905
  Transmission Date: 20061208
  Serious: Yes (Other)
  Sender: FDA-Public Use
  Company Number: 2006107521

PATIENT
  Sex: Male

DRUGS (1)
  1. ZYVOX [Suspect]
     Indication: DRUG USE FOR UNKNOWN INDICATION
     Dates: start: 20060801, end: 20060830

REACTIONS (1)
  - CATARACT [None]
